FAERS Safety Report 24934002 (Version 1)
Quarter: 2025Q1

REPORT INFORMATION
  Report Type: Report from Study
  Country: US (occurrence: US)
  Receive Date: 20250206
  Receipt Date: 20250206
  Transmission Date: 20250409
  Serious: Yes (Death, Hospitalization, Other)
  Sender: EXELIXIS
  Company Number: US-EXELIXIS-CABO-24076958

PATIENT
  Age: 56 Year
  Sex: Female

DRUGS (10)
  1. CABOMETYX [Suspect]
     Active Substance: CABOZANTINIB S-MALATE
     Indication: Renal cancer
     Dosage: 40 MG, QD
     Route: 048
  2. CABOMETYX [Suspect]
     Active Substance: CABOZANTINIB S-MALATE
     Dosage: 20 MG, QD
     Route: 048
  3. AZELASTINE [Concomitant]
     Active Substance: AZELASTINE
  4. CALCIUM CITRATE\VITAMIN D [Concomitant]
     Active Substance: CALCIUM CITRATE\VITAMIN D
  5. ELIQUIS [Concomitant]
     Active Substance: APIXABAN
  6. FLUTICASONE [Concomitant]
     Active Substance: FLUTICASONE
  7. LEVOTHYROXINE [Concomitant]
     Active Substance: LEVOTHYROXINE
  8. LOSARTAN POTASSIUM [Concomitant]
     Active Substance: LOSARTAN POTASSIUM
  9. OMEPRAZOLE [Concomitant]
     Active Substance: OMEPRAZOLE
  10. ONDANSETRON [Concomitant]
     Active Substance: ONDANSETRON

REACTIONS (14)
  - Diarrhoea [Unknown]
  - Death [Fatal]
  - Brain oedema [Unknown]
  - Hemiparesis [Recovering/Resolving]
  - Radiation necrosis [Unknown]
  - Radiotherapy [Unknown]
  - Seizure [Unknown]
  - Headache [Unknown]
  - Nausea [Unknown]
  - Decreased appetite [Recovered/Resolved]
  - Vomiting [Recovered/Resolved]
  - Fatigue [Recovered/Resolved]
  - Nausea [Recovered/Resolved]
  - Diarrhoea [Recovered/Resolved]

NARRATIVE: CASE EVENT DATE: 20240320
